FAERS Safety Report 6824643-0 (Version None)
Quarter: 2010Q3

REPORT INFORMATION
  Report Type: 
  Country: None (occurrence: None)
  Receive Date: 20100708
  Receipt Date: 20061108
  Transmission Date: 20110219
  Serious: No
  Sender: FDA-Public Use
  Company Number: US-PFIZER INC-2006138857

PATIENT
  Sex: Female
  Weight: 72.57 kg

DRUGS (28)
  1. CHANTIX [Suspect]
     Indication: EX-TOBACCO USER
     Dates: start: 20061101
  2. NOVOLOG [Concomitant]
     Dosage: 4 SHOTS,DAY
  3. LANTUS [Concomitant]
  4. FLONASE [Concomitant]
  5. FORADIL [Concomitant]
  6. ALBUTEROL [Concomitant]
  7. AZMACORT [Concomitant]
  8. IPRATROPIUM BROMIDE AND ALBUTEROL SULFATE [Concomitant]
  9. ASPIRIN [Concomitant]
  10. STOOL SOFTENER [Concomitant]
  11. CENTRUM SILVER [Concomitant]
  12. MUCINEX [Concomitant]
     Dosage: 2(600MG) BID
  13. ALLOPURINOL [Concomitant]
  14. CARDIZEM [Concomitant]
  15. IMDUR [Concomitant]
     Dosage: 1-1/2 TAB /DAY
  16. POTASSIUM CHLORIDE [Concomitant]
  17. RANITIDINE [Concomitant]
  18. LEVOTHYROXINE SODIUM [Concomitant]
  19. ZYRTEC [Concomitant]
  20. BUMETANIDE [Concomitant]
  21. HYDROCHLOROTHIAZIDE [Concomitant]
  22. REGLAN [Concomitant]
  23. LIPITOR [Concomitant]
  24. UROCIT-K [Concomitant]
     Dosage: 5 EVERY 1 DAYS
  25. CYMBALTA [Concomitant]
  26. SALBUTAMOL SULFATE [Concomitant]
  27. PREDNISONE [Concomitant]
  28. DOXYCYCLINE [Concomitant]

REACTIONS (2)
  - NAUSEA [None]
  - VOMITING [None]
